FAERS Safety Report 22863546 (Version 5)
Quarter: 2024Q1

REPORT INFORMATION
  Report Type: Report from Study
  Country: US (occurrence: US)
  Receive Date: 20230825
  Receipt Date: 20240205
  Transmission Date: 20240410
  Serious: No
  Sender: FDA-Public Use
  Company Number: US-ACADIA PHARMACEUTICALS INC.-ACA-2023-TRF-003261

PATIENT
  Age: 2 Year
  Sex: Female
  Weight: 11.1 kg

DRUGS (3)
  1. DAYBUE [Suspect]
     Active Substance: TROFINETIDE
     Indication: Rett syndrome
     Dosage: 25 MILLILITER, BID
     Route: 048
     Dates: start: 20230726, end: 202311
  2. CLONIDINE HYDROCHLORIDE [Concomitant]
     Active Substance: CLONIDINE HYDROCHLORIDE
     Dosage: 0.1 MILLIGRAM, QUATER TABLET ABOUT AN HOUR BEFORE BEDTIME
     Dates: start: 20230718
  3. MIRALAX [Concomitant]
     Active Substance: POLYETHYLENE GLYCOL 3350
     Dosage: 0.5 SCOOPS (8.5 GRAMS), ORAL, QD. DISSOLVE IN 8 OUNCES OF FLUID AND DRINK ENTIRE LIQUID
     Route: 048
     Dates: start: 20230126

REACTIONS (7)
  - Emotional distress [Recovered/Resolved]
  - Crying [Recovered/Resolved]
  - Screaming [Recovered/Resolved]
  - Diarrhoea [Not Recovered/Not Resolved]
  - Diarrhoea [Not Recovered/Not Resolved]
  - Diarrhoea [Not Recovered/Not Resolved]
  - Vomiting [Recovered/Resolved]

NARRATIVE: CASE EVENT DATE: 20230728
